FAERS Safety Report 6375294-6 (Version None)
Quarter: 2009Q3

REPORT INFORMATION
  Report Type: 
  Country: None (occurrence: None)
  Receive Date: 20090924
  Receipt Date: 20090918
  Transmission Date: 20100115
  Serious: Yes (Hospitalization)
  Sender: FDA-Public Use
  Company Number: A0808537A

PATIENT
  Age: 45 Year
  Sex: Male

DRUGS (1)
  1. AEROLIN [Suspect]
     Indication: DRUG USE FOR UNKNOWN INDICATION
     Dosage: 2MG UNKNOWN
     Route: 048

REACTIONS (2)
  - ASTHMATIC CRISIS [None]
  - ATRIAL FIBRILLATION [None]
